FAERS Safety Report 21938104 (Version 1)
Quarter: 2023Q1

REPORT INFORMATION
  Report Type: Spontaneous
  Country: US (occurrence: US)
  Receive Date: 20230201
  Receipt Date: 20230201
  Transmission Date: 20230418
  Serious: No
  Sender: FDA-Public Use
  Company Number: US-PFIZER INC-PV202300017705

PATIENT
  Age: 57 Year
  Sex: Male
  Weight: 82.993 kg

DRUGS (3)
  1. XELJANZ XR [Suspect]
     Active Substance: TOFACITINIB CITRATE
     Indication: Rheumatoid arthritis
     Dosage: 11 MG, 2X/DAY
     Dates: start: 202112, end: 20220623
  2. METHOTREXATE [Concomitant]
     Active Substance: METHOTREXATE
     Indication: Rheumatoid arthritis
     Dosage: 20 MG
     Route: 048
     Dates: start: 201805
  3. ORENCIA [Concomitant]
     Active Substance: ABATACEPT
     Indication: Rheumatoid arthritis
     Dosage: 125 MG
     Route: 058
     Dates: start: 202103, end: 202112

REACTIONS (1)
  - Drug ineffective [Unknown]

NARRATIVE: CASE EVENT DATE: 20220623
